FAERS Safety Report 9176416 (Version 1)
Quarter: 2013Q1

REPORT INFORMATION
  Report Type: Spontaneous
  Country: CA (occurrence: CA)
  Receive Date: 20130321
  Receipt Date: 20130321
  Transmission Date: 20140127
  Serious: Yes (Other)
  Sender: FDA-Public Use
  Company Number: CA-AMGEN-CANSP2013016381

PATIENT
  Age: 54 Year
  Sex: Female
  Weight: 72 kg

DRUGS (2)
  1. NPLATE [Suspect]
     Indication: ORAL MUCOSAL EXFOLIATION
     Dosage: UNK
     Dates: start: 20130219
  2. BLOOD TRANSFUSION, AUXILIARY PRODUCTS [Concomitant]

REACTIONS (2)
  - Therapeutic response decreased [Unknown]
  - Haemorrhage [Unknown]
